FAERS Safety Report 7320555-7 (Version None)
Quarter: 2011Q1

REPORT INFORMATION
  Report Type: 
  Country: None (occurrence: None)
  Receive Date: 20110228
  Receipt Date: 20110223
  Transmission Date: 20110831
  Serious: Yes (Other)
  Sender: FDA-Public Use
  Company Number: PE-BRISTOL-MYERS SQUIBB COMPANY-15425309

PATIENT
  Sex: Female

DRUGS (2)
  1. CAPECITABINE [Suspect]
  2. IXEMPRA KIT [Suspect]
     Indication: BREAST CANCER METASTATIC
     Route: 042

REACTIONS (2)
  - PAIN [None]
  - ULCER [None]
